FAERS Safety Report 9664771 (Version 1)
Quarter: 2013Q4

REPORT INFORMATION
  Report Type: Report from Study
  Country: NL (occurrence: NL)
  Receive Date: 20131101
  Receipt Date: 20131101
  Transmission Date: 20140711
  Serious: Yes (Hospitalization)
  Sender: FDA-Public Use
  Company Number: NL-AMGEN-NLDCT2013076790

PATIENT
  Age: 55 Year
  Sex: Female

DRUGS (14)
  1. PEGFILGRASTIM [Suspect]
     Indication: DIFFUSE LARGE B-CELL LYMPHOMA
     Dosage: 2 MG, UNK
     Route: 058
     Dates: start: 20110412
  2. PEGFILGRASTIM [Suspect]
     Dosage: 6 MG, UNK
     Route: 058
     Dates: start: 20110524
  3. RITUXIMAB [Suspect]
     Indication: DIFFUSE LARGE B-CELL LYMPHOMA
     Dosage: 500 MG, UNK
     Route: 042
     Dates: start: 20110411
  4. RITUXIMAB [Suspect]
     Dosage: 500 MG, UNK
     Route: 042
     Dates: start: 20110523
  5. PREDNISONE [Suspect]
     Indication: DIFFUSE LARGE B-CELL LYMPHOMA
     Dosage: 100 MG, UNK
     Route: 048
     Dates: start: 20110411
  6. PREDNISONE [Suspect]
     Dosage: 100 MG, UNK
     Route: 048
     Dates: start: 20110523
  7. CYCLOPHOSPHAMIDE [Suspect]
     Indication: DIFFUSE LARGE B-CELL LYMPHOMA
     Dosage: 1100 MG, UNK
     Route: 042
     Dates: start: 20110411
  8. CYCLOPHOSPHAMIDE [Suspect]
     Dosage: 1100 MG, UNK
     Route: 042
     Dates: start: 20110523
  9. DOXORUBICIN [Suspect]
     Indication: DIFFUSE LARGE B-CELL LYMPHOMA
     Dosage: 80 MG, UNK
     Route: 042
     Dates: start: 20110411
  10. DOXORUBICIN [Suspect]
     Dosage: 80 MG, UNK
     Route: 042
     Dates: start: 20110523
  11. VINCRISTINE [Suspect]
     Indication: DIFFUSE LARGE B-CELL LYMPHOMA
     Dosage: 2 MG, UNK
     Route: 042
     Dates: start: 20110411
  12. VINCRISTINE [Suspect]
     Dosage: 2 MG, UNK
     Route: 042
     Dates: start: 20110523
  13. THYRAX                             /00068002/ [Concomitant]
     Indication: HYPOTHYROIDISM
     Dosage: 75 MG, UNK
     Route: 048
  14. PARACETAMOL [Concomitant]
     Indication: PAIN
     Dosage: UNK UNK, WHEN NEEDED
     Route: 048

REACTIONS (2)
  - Urinary tract infection [Recovered/Resolved]
  - Abdominal abscess [Recovered/Resolved]
